FAERS Safety Report 5986889-3 (Version None)
Quarter: 2008Q4

REPORT INFORMATION
  Report Type: 
  Country: None (occurrence: None)
  Receive Date: 20081209
  Receipt Date: 20081126
  Transmission Date: 20090506
  Serious: No
  Sender: FDA-Public Use
  Company Number: US-ELI_LILLY_AND_COMPANY-US200810001648

PATIENT
  Sex: Female

DRUGS (10)
  1. EVISTA [Suspect]
     Indication: MENOPAUSE
     Dosage: UNK, UNKNOWN
     Route: 065
     Dates: start: 20000101
  2. VISTARIL [Concomitant]
     Dosage: 50 MG, 4/D
     Route: 065
     Dates: start: 19801201
  3. TRAVATAN [Concomitant]
     Indication: GLAUCOMA
     Dosage: UNK, UNKNOWN
     Route: 065
     Dates: start: 19980101
  4. KLONOPIN [Concomitant]
     Indication: CONVULSION
     Dosage: 1.5 MG, EACH EVENING
     Route: 065
     Dates: start: 19990101
  5. ZANAFLEX [Concomitant]
     Dosage: 4 MG, 3/D
     Route: 065
     Dates: start: 20000101
  6. CARBATROL [Concomitant]
     Dosage: 200 MG, 2/D
     Route: 065
     Dates: start: 20000401, end: 20060901
  7. PERCOCET [Concomitant]
     Dosage: UNK, AS NEEDED
     Route: 065
     Dates: start: 20050101
  8. PHENOBARBITAL TAB [Concomitant]
     Dosage: 97.2 MG, DAILY (1/D)
     Route: 065
  9. SYNTHROID [Concomitant]
     Dosage: 50 UG, DAILY (1/D)
     Route: 065
  10. SPIRONOLACTONE [Concomitant]
     Dosage: 50 MG, 3/D
     Route: 065

REACTIONS (2)
  - ABDOMINAL PAIN UPPER [None]
  - TEMPOROMANDIBULAR JOINT SYNDROME [None]
